FAERS Safety Report 8451866-X (Version None)
Quarter: 2012Q2

REPORT INFORMATION
  Report Type: 
  Country: None (occurrence: None)
  Receive Date: 20120620
  Receipt Date: 20120413
  Transmission Date: 20120825
  Serious: No
  Sender: FDA-Public Use
  Company Number: US-VERTEX PHARMACEUTICALS INC.-AE-2012-004150

PATIENT
  Sex: Male
  Weight: 83.99 kg

DRUGS (4)
  1. INCIVEK [Suspect]
     Indication: HEPATITIS C
     Route: 048
     Dates: start: 20120202
  2. PEGASYS [Concomitant]
     Indication: HEPATITIS C
     Route: 058
     Dates: start: 20120202
  3. RIBAVIRIN [Concomitant]
     Indication: HEPATITIS C
     Dates: start: 20120202, end: 20120202
  4. RIBAVIRIN [Concomitant]
     Route: 048
     Dates: start: 20120201

REACTIONS (9)
  - ANAEMIA [None]
  - DYSPNOEA [None]
  - DEHYDRATION [None]
  - ASTHENIA [None]
  - NAUSEA [None]
  - FATIGUE [None]
  - INFLUENZA LIKE ILLNESS [None]
  - DIZZINESS [None]
  - DECREASED APPETITE [None]
